FAERS Safety Report 5328699-6 (Version None)
Quarter: 2007Q2

REPORT INFORMATION
  Report Type: 
  Country: None (occurrence: None)
  Receive Date: 20070518
  Receipt Date: 20070514
  Transmission Date: 20071010
  Serious: Yes (Hospitalization)
  Sender: FDA-Public Use
  Company Number: B0471057A

PATIENT
  Age: 66 Year
  Sex: Male

DRUGS (20)
  1. CEFUROXIME [Suspect]
     Dosage: 250MG TWICE PER DAY
     Route: 048
     Dates: start: 20070212, end: 20070309
  2. DI-ANTALVIC [Concomitant]
     Route: 048
  3. ALLOPURINOL [Concomitant]
     Dosage: 300MG PER DAY
     Route: 048
  4. IRBESARTAN [Concomitant]
     Indication: ESSENTIAL HYPERTENSION
     Dosage: 150MG PER DAY
     Route: 048
     Dates: end: 20070318
  5. NEXIUM [Concomitant]
     Dosage: 1UNIT PER DAY
     Route: 048
     Dates: end: 20070401
  6. KARDEGIC [Concomitant]
     Dosage: 160MG PER DAY
     Route: 048
  7. PHYSIOTENS [Concomitant]
  8. ZANIDIP [Concomitant]
  9. DISCOTRINE [Concomitant]
  10. SERETIDE [Concomitant]
     Dosage: 1UNIT TWICE PER DAY
     Dates: start: 20070318
  11. DOLIPRANE [Concomitant]
  12. DUPHALAC [Concomitant]
  13. VITAMIN B1 B6 [Concomitant]
  14. LEXOMIL [Concomitant]
     Route: 065
     Dates: start: 20070321
  15. CIPROFLOXACIN HCL [Concomitant]
     Route: 065
     Dates: start: 20070323, end: 20070406
  16. FORTUM [Concomitant]
     Route: 065
     Dates: start: 20070323, end: 20070406
  17. LASIX [Concomitant]
     Route: 065
     Dates: start: 20070323
  18. MOTILIUM [Concomitant]
     Route: 065
     Dates: start: 20070323
  19. SPIRIVA [Concomitant]
     Route: 055
     Dates: start: 20070327
  20. DIFFU K [Concomitant]
     Route: 065
     Dates: start: 20070402

REACTIONS (10)
  - ALANINE AMINOTRANSFERASE INCREASED [None]
  - ANOREXIA [None]
  - ASPARTATE AMINOTRANSFERASE INCREASED [None]
  - BLOOD ALKALINE PHOSPHATASE INCREASED [None]
  - GAMMA-GLUTAMYLTRANSFERASE INCREASED [None]
  - GENERAL PHYSICAL HEALTH DETERIORATION [None]
  - HEPATITIS [None]
  - JAUNDICE [None]
  - PLEURAL EFFUSION [None]
  - TACHYPNOEA [None]
